FAERS Safety Report 19436666 (Version 2)
Quarter: 2021Q3

REPORT INFORMATION
  Report Type: Spontaneous
  Country: US (occurrence: US)
  Receive Date: 20210618
  Receipt Date: 20210707
  Transmission Date: 20211014
  Serious: Yes (Other)
  Sender: FDA-Public Use
  Company Number: US-ORGANON-O2106USA001500

PATIENT
  Age: 28 Year
  Sex: Female
  Weight: 70.94 kg

DRUGS (1)
  1. NEXPLANON [Suspect]
     Active Substance: ETONOGESTREL
     Indication: CONTRACEPTION
     Dosage: 1 ROD EVERY 3 YEARS, LEFT UPPER ARM
     Route: 059
     Dates: start: 20140422, end: 20210615

REACTIONS (3)
  - Breast cancer [Unknown]
  - Incorrect product administration duration [Unknown]
  - Breast injury [Unknown]

NARRATIVE: CASE EVENT DATE: 20170422
